FAERS Safety Report 21119714 (Version 1)
Quarter: 2022Q3

REPORT INFORMATION
  Report Type: Spontaneous
  Country: US (occurrence: None)
  Receive Date: 20220721
  Receipt Date: 20220721
  Transmission Date: 20221027
  Serious: No
  Sender: FDA-Public Use
  Company Number: None

PATIENT
  Sex: Male

DRUGS (1)
  1. RINVOQ [Suspect]
     Active Substance: UPADACITINIB
     Indication: Cyst
     Dosage: FREQUENCY : DAILY;?
     Route: 048
     Dates: start: 202203

REACTIONS (7)
  - Therapy non-responder [None]
  - Erythema [None]
  - Pain [None]
  - Scar [None]
  - Feeling hot [None]
  - Spinal disorder [None]
  - Arthralgia [None]
